FAERS Safety Report 5206532-0 (Version None)
Quarter: 2006Q4

REPORT INFORMATION
  Report Type: 
  Country: None (occurrence: None)
  Receive Date: 20061026
  Receipt Date: 20060828
  Transmission Date: 20070319
  Serious: No
  Sender: FDA-Public Use
  Company Number: 2006106062

PATIENT
  Age: 67 Year
  Sex: Female
  Weight: 120.2032 kg

DRUGS (6)
  1. LYRICA [Suspect]
     Indication: LIMB DISCOMFORT
     Dosage: 150 MG (50 MG, 3 IN 1 D), ORAL
     Route: 048
     Dates: start: 20060818, end: 20060821
  2. LOTREL [Concomitant]
  3. GLIMEPIRIDE [Concomitant]
  4. HYDROCHLOROTHIAZIDE [Concomitant]
  5. GLUCOSAMINE W/CHONDROITIN SULFATES (ASCORBIC ACID, CHONDROITIN SULFATE [Concomitant]
  6. METFORMIN HCL [Concomitant]

REACTIONS (2)
  - FEELING ABNORMAL [None]
  - OEDEMA PERIPHERAL [None]
